FAERS Safety Report 13512834 (Version 2)
Quarter: 2017Q2

REPORT INFORMATION
  Report Type: Spontaneous
  Country: US (occurrence: US)
  Receive Date: 20170504
  Receipt Date: 20170512
  Transmission Date: 20170830
  Serious: Yes (Hospitalization)
  Sender: FDA-Public Use
  Company Number: US-JNJFOC-20170502902

PATIENT
  Sex: Male

DRUGS (1)
  1. IMBRUVICA [Suspect]
     Active Substance: IBRUTINIB
     Indication: CHRONIC LYMPHOCYTIC LEUKAEMIA
     Route: 048

REACTIONS (7)
  - Respiratory failure [Unknown]
  - Disseminated cryptococcosis [Unknown]
  - Central nervous system fungal infection [Unknown]
  - Klebsiella bacteraemia [Unknown]
  - Cerebrovascular accident [Not Recovered/Not Resolved]
  - Pneumocystis jirovecii pneumonia [Unknown]
  - Cytomegalovirus viraemia [Unknown]

NARRATIVE: CASE EVENT DATE: 20160827
